FAERS Safety Report 16899497 (Version 2)
Quarter: 2019Q4

REPORT INFORMATION
  Report Type: Spontaneous
  Country: US (occurrence: US)
  Receive Date: 20191009
  Receipt Date: 20191218
  Transmission Date: 20200122
  Serious: No
  Sender: FDA-Public Use
  Company Number: US-HORIZON-RAV-0308-2019

PATIENT
  Age: 4 Year
  Sex: Female

DRUGS (1)
  1. RAVICTI [Suspect]
     Active Substance: GLYCEROL PHENYLBUTYRATE
     Indication: UREA CYCLE DISORDER
     Route: 048

REACTIONS (5)
  - Defiant behaviour [Unknown]
  - Irritability [Unknown]
  - Anger [Unknown]
  - Aggression [Unknown]
  - Mood altered [Unknown]
